FAERS Safety Report 5288729-7 (Version None)
Quarter: 2007Q2

REPORT INFORMATION
  Report Type: 
  Country: None (occurrence: None)
  Receive Date: 20070405
  Receipt Date: 20070328
  Transmission Date: 20071010
  Serious: Yes (Life-Threatening, Hospitalization)
  Sender: FDA-Public Use
  Company Number: FR-SANOFI-SYNTHELABO-A02200700924

PATIENT
  Age: 62 Year
  Sex: Female

DRUGS (5)
  1. RANITIDINE [Concomitant]
     Indication: PREMEDICATION
     Route: 065
     Dates: start: 20070327, end: 20070327
  2. DEXCHLORPHENIRAMINE [Concomitant]
     Indication: PREMEDICATION
     Route: 065
     Dates: start: 20070327, end: 20070327
  3. CETUXIMAB [Concomitant]
     Indication: RECTAL CANCER
     Route: 042
     Dates: start: 20070327, end: 20070327
  4. ELOXATIN [Suspect]
     Indication: RECTAL CANCER
     Route: 042
     Dates: start: 20070327, end: 20070327
  5. CORTICOSTEROIDS [Concomitant]
     Indication: PREMEDICATION
     Route: 065
     Dates: end: 20070327

REACTIONS (2)
  - LOSS OF CONSCIOUSNESS [None]
  - SHOCK [None]
